FAERS Safety Report 12080611 (Version 1)
Quarter: 2016Q1

REPORT INFORMATION
  Report Type: Spontaneous
  Country: US (occurrence: None)
  Receive Date: 20160212
  Receipt Date: 20160212
  Transmission Date: 20160526
  Serious: No
  Sender: FDA-Public Use
  Company Number: None

PATIENT
  Age: 23 Year
  Sex: Female
  Weight: 74.84 kg

DRUGS (8)
  1. SERTRALINE [Concomitant]
     Active Substance: SERTRALINE HYDROCHLORIDE
  2. NEXPLANON [Suspect]
     Active Substance: ETONOGESTREL
  3. MAGNESIUM [Concomitant]
     Active Substance: MAGNESIUM
  4. CLONAZEPAM. [Concomitant]
     Active Substance: CLONAZEPAM
  5. CALCIUM [Concomitant]
     Active Substance: CALCIUM
  6. ADULT MULTIVITAMIN [Concomitant]
  7. VITAMIN D [Concomitant]
     Active Substance: CHOLECALCIFEROL
  8. FISH OIL [Concomitant]
     Active Substance: FISH OIL

REACTIONS (5)
  - Headache [None]
  - Oropharyngeal pain [None]
  - Polymenorrhoea [None]
  - Mood swings [None]
  - Influenza like illness [None]

NARRATIVE: CASE EVENT DATE: 20160203
